FAERS Safety Report 17388186 (Version 1)
Quarter: 2020Q1

REPORT INFORMATION
  Report Type: Report from Study
  Country: US (occurrence: US)
  Receive Date: 20200206
  Receipt Date: 20200206
  Transmission Date: 20200409
  Serious: No
  Sender: FDA-Public Use
  Company Number: NVSC2019US046783

PATIENT
  Age: 61 Year
  Sex: Male

DRUGS (1)
  1. ENTRESTO [Suspect]
     Active Substance: SACUBITRIL\VALSARTAN
     Indication: ISCHAEMIC CARDIOMYOPATHY
     Dosage: 1 DF (24 MG SACUBITRIL AND 26 MG VALSARTAN), BID
     Route: 048

REACTIONS (3)
  - Product use in unapproved indication [Unknown]
  - Wrong technique in product usage process [Unknown]
  - Prescribed underdose [Unknown]
